FAERS Safety Report 6022857-3 (Version None)
Quarter: 2008Q4

REPORT INFORMATION
  Report Type: 
  Country: None (occurrence: None)
  Receive Date: 20081230
  Receipt Date: 20081027
  Transmission Date: 20090506
  Serious: No
  Sender: FDA-Public Use
  Company Number: US-ABBOTT-08P-163-0484077-00

PATIENT
  Sex: Male

DRUGS (1)
  1. OMNICEF [Suspect]
     Indication: STAPHYLOCOCCAL SKIN INFECTION
     Route: 048
     Dates: start: 20080919, end: 20080922

REACTIONS (1)
  - RASH [None]
